FAERS Safety Report 11462525 (Version 1)
Quarter: 2015Q3

REPORT INFORMATION
  Report Type: Spontaneous
  Country: US (occurrence: US)
  Receive Date: 20150831
  Receipt Date: 20150831
  Transmission Date: 20151125
  Serious: Yes (Other)
  Sender: FDA-Public Use
  Company Number: US-ELI_LILLY_AND_COMPANY-US201010004540

PATIENT
  Age: 71 Year
  Sex: Male
  Weight: 75.74 kg

DRUGS (7)
  1. LIBRIUM [Concomitant]
     Active Substance: CHLORDIAZEPOXIDE HYDROCHLORIDE
     Dosage: 10 MG, AS NEEDED
  2. NASONEX [Concomitant]
     Active Substance: MOMETASONE FUROATE
     Dosage: UNK, DAILY (1/D)
  3. ASA [Concomitant]
     Active Substance: ASPIRIN
     Dosage: 81 MG, 2/D
  4. TAMOXIFEN [Concomitant]
     Active Substance: TAMOXIFEN
     Indication: BREAST CANCER
     Dosage: 20 MG, DAILY (1/D)
     Dates: start: 201001
  5. TAMOXIFEN [Concomitant]
     Active Substance: TAMOXIFEN
     Dosage: 20 MG, DAILY (1/D)
  6. OXYCODONE [Concomitant]
     Active Substance: OXYCODONE
     Dosage: 1 D/F, AS NEEDED
  7. CYMBALTA [Suspect]
     Active Substance: DULOXETINE HYDROCHLORIDE
     Indication: MAJOR DEPRESSION
     Dosage: 90 MG, DAILY (1/D)
     Dates: start: 20100610

REACTIONS (1)
  - Hyponatraemia [Recovered/Resolved]
